FAERS Safety Report 4561897-8 (Version None)
Quarter: 2005Q1

REPORT INFORMATION
  Report Type: 
  Country: None (occurrence: None)
  Receive Date: 20050126
  Receipt Date: 20050120
  Transmission Date: 20050727
  Serious: Yes (Disabling)
  Sender: FDA-Public Use
  Company Number: US-MERCK-0501USA03205

PATIENT
  Age: 44 Year
  Sex: Male

DRUGS (2)
  1. VIOXX [Suspect]
     Indication: PAIN
     Route: 048
  2. NAPROXEN [Concomitant]
     Route: 065

REACTIONS (3)
  - HEADACHE [None]
  - MYALGIA [None]
  - SWELLING [None]
